FAERS Safety Report 7443249-6 (Version None)
Quarter: 2011Q2

REPORT INFORMATION
  Report Type: 
  Country: None (occurrence: None)
  Receive Date: 20110428
  Receipt Date: 20110420
  Transmission Date: 20111010
  Serious: Yes (Other)
  Sender: FDA-Public Use
  Company Number: B0715381A

PATIENT
  Age: 75 Year
  Sex: Male

DRUGS (2)
  1. COMBODART [Suspect]
     Indication: BENIGN PROSTATIC HYPERPLASIA
     Dosage: 1CAP PER DAY
     Route: 048
     Dates: start: 20110117, end: 20110404
  2. UNKNOWN MEDICATION [Concomitant]

REACTIONS (2)
  - DIZZINESS [None]
  - BLINDNESS TRANSIENT [None]
